FAERS Safety Report 18159052 (Version 2)
Quarter: 2020Q3

REPORT INFORMATION
  Report Type: Spontaneous
  Country: US (occurrence: US)
  Receive Date: 20200817
  Receipt Date: 20200831
  Transmission Date: 20201103
  Serious: No
  Sender: FDA-Public Use
  Company Number: US-PFIZER INC-2020262785

PATIENT
  Age: 59 Year
  Sex: Female
  Weight: 108.86 kg

DRUGS (2)
  1. FLECTOR [Suspect]
     Active Substance: DICLOFENAC EPOLAMINE
     Indication: ARTHRALGIA
     Dosage: 1 DOSAGE FORM, 2X/DAY [1 PATCH TO SKIN Q (EVERY) 12 H]
     Dates: start: 2014
  2. FLECTOR [Suspect]
     Active Substance: DICLOFENAC EPOLAMINE
     Indication: BACK PAIN

REACTIONS (2)
  - Product dispensing error [Unknown]
  - Oral pain [Unknown]

NARRATIVE: CASE EVENT DATE: 2014
